FAERS Safety Report 7279375-4 (Version None)
Quarter: 2011Q1

REPORT INFORMATION
  Report Type: 
  Country: None (occurrence: None)
  Receive Date: 20110208
  Receipt Date: 20110126
  Transmission Date: 20110831
  Serious: Yes (Death, Life-Threatening, Hospitalization)
  Sender: FDA-Public Use
  Company Number: JP-AMGEN-JPNCT2011005315

PATIENT
  Age: 18 Year
  Sex: Male
  Weight: 48 kg

DRUGS (8)
  1. CORTICOSTEROIDS [Concomitant]
     Dosage: UNK
     Route: 065
  2. HIRUDOID FORTE [Concomitant]
     Dosage: UNK
     Route: 062
  3. PANITUMUMAB [Suspect]
     Indication: COLORECTAL CANCER
     Dosage: 6 MG/KG, Q2WK
     Route: 041
     Dates: start: 20100924, end: 20101203
  4. IRINOTECAN HYDROCHLORIDE [Concomitant]
     Route: 041
     Dates: start: 20100924
  5. FLUOROURACIL [Concomitant]
     Dosage: UNK UNK, Q2WK
     Route: 041
     Dates: start: 20100924
  6. CALCIUM LEVOFOLINATE [Concomitant]
     Dosage: 170 MG/M2, UNK
     Route: 041
     Dates: start: 20100924
  7. ANTIHISTAMINES [Concomitant]
     Dosage: UNK
     Route: 065
  8. MYSER                              /01249201/ [Concomitant]
     Dosage: UNK
     Route: 062

REACTIONS (3)
  - BLOOD MAGNESIUM DECREASED [None]
  - COLORECTAL CANCER [None]
  - PARONYCHIA [None]
